FAERS Safety Report 7938939-2 (Version None)
Quarter: 2011Q4

REPORT INFORMATION
  Report Type: 
  Country: None (occurrence: None)
  Receive Date: 20111124
  Receipt Date: 20111123
  Transmission Date: 20120403
  Serious: No
  Sender: FDA-Public Use
  Company Number: US-PFIZER INC-2011287029

PATIENT
  Sex: Female
  Weight: 96.599 kg

DRUGS (7)
  1. ZEGERID [Concomitant]
     Indication: HERNIA
  2. GEODON [Suspect]
     Dosage: 80 MG, DAILY
     Route: 048
     Dates: start: 20111101, end: 20111122
  3. ZEGERID [Concomitant]
     Indication: GASTRITIS
  4. GEODON [Suspect]
     Indication: BIPOLAR DISORDER
     Dosage: 40 MG, DAILY
     Route: 048
     Dates: start: 20111109, end: 20111111
  5. ZEGERID [Concomitant]
     Indication: GASTROOESOPHAGEAL REFLUX DISEASE
     Dosage: [OMEPRAZOLE 20 MG] / [SODIUM BICARBONATE 1100 MG], AS NEEDED
  6. GEODON [Suspect]
     Dosage: 80 MG, DAILY
     Route: 048
     Dates: start: 20111112, end: 20111101
  7. GEODON [Suspect]
     Dosage: 80 MG, 2X/DAY
     Route: 048
     Dates: start: 20111101, end: 20111101

REACTIONS (2)
  - NAUSEA [None]
  - VERTIGO [None]
